FAERS Safety Report 6884134-8 (Version None)
Quarter: 2010Q3

REPORT INFORMATION
  Report Type: 
  Country: None (occurrence: None)
  Receive Date: 20100729
  Receipt Date: 20100624
  Transmission Date: 20110219
  Serious: No
  Sender: FDA-Public Use
  Company Number: US-BAYER-201026815NA

PATIENT
  Age: 71 Year
  Sex: Female
  Weight: 107 kg

DRUGS (8)
  1. ULTRAVIST 370 [Suspect]
     Indication: COMPUTERISED TOMOGRAM
     Dosage: TOTAL DAILY DOSE: 50 ML  UNIT DOSE: 300 ML
     Route: 042
     Dates: start: 20100623, end: 20100623
  2. HOME OXYGEN [Concomitant]
  3. COUMADIN [Concomitant]
  4. HYDROCHLOROTHIAZIDE [Concomitant]
  5. COZAAR [Concomitant]
  6. PERCOCET [Concomitant]
  7. GLIPIZIDE [Concomitant]
  8. NEURONTIN [Concomitant]

REACTIONS (5)
  - ERYTHEMA [None]
  - NASAL CONGESTION [None]
  - RASH [None]
  - URTICARIA [None]
  - VOMITING [None]
